FAERS Safety Report 21927332 (Version 1)
Quarter: 2023Q1

REPORT INFORMATION
  Report Type: Spontaneous
  Country: US (occurrence: None)
  Receive Date: 20230129
  Receipt Date: 20230129
  Transmission Date: 20230418
  Serious: Yes (Other)
  Sender: FDA-Public Use
  Company Number: None

PATIENT
  Age: 41 Year
  Sex: Female

DRUGS (1)
  1. SUBUTEX [Suspect]
     Active Substance: BUPRENORPHINE HYDROCHLORIDE
     Indication: Drug dependence
     Dosage: OTHER QUANTITY : 2 TABLET(S);?FREQUENCY : TWICE A DAY;?
     Route: 060
     Dates: start: 20190901

REACTIONS (6)
  - Dental caries [None]
  - Tooth injury [None]
  - Tooth erosion [None]
  - Gingival disorder [None]
  - Teeth brittle [None]
  - Tooth fracture [None]

NARRATIVE: CASE EVENT DATE: 20210101
